FAERS Safety Report 8122880-9 (Version None)
Quarter: 2012Q1

REPORT INFORMATION
  Report Type: 
  Country: None (occurrence: None)
  Receive Date: 20120208
  Receipt Date: 20120130
  Transmission Date: 20120608
  Serious: Yes (Other)
  Sender: FDA-Public Use
  Company Number: DE-BRISTOL-MYERS SQUIBB COMPANY-16380776

PATIENT
  Age: 74 Year
  Sex: Male

DRUGS (1)
  1. MITOMYCIN [Suspect]
     Dosage: INJECTION
     Route: 043
     Dates: start: 20120118

REACTIONS (3)
  - SKIN NECROSIS [None]
  - PENILE ERYTHEMA [None]
  - PENILE OEDEMA [None]
